FAERS Safety Report 4634928-4 (Version None)
Quarter: 2005Q2

REPORT INFORMATION
  Report Type: 
  Country: None (occurrence: None)
  Receive Date: 20050414
  Receipt Date: 20050407
  Transmission Date: 20051028
  Serious: Yes (Death, Hospitalization)
  Sender: FDA-Public Use
  Company Number: CH-JNJFOC-20050402285

PATIENT
  Age: 49 Year

DRUGS (10)
  1. ORTHOCLONE OKT3 [Suspect]
     Indication: TRANSPLANT REJECTION
  2. ATG [Suspect]
     Indication: TRANSPLANT REJECTION
  3. TACROLIMUS [Suspect]
     Dosage: ONCE DAILY EVERY OTHER DAY TO EVERY THIRD DAY, TROUGH LEVELS 10-13
  4. TACROLIMUS [Suspect]
     Dosage: PAUSED FOR 8 DAYS FOR TROUGH LEVEL 9 TO 25 UG/L
  5. TACROLIMUS [Suspect]
     Dosage: STARTED ON DAY 102 TO UNKNOWN DATE
  6. MYCOPHENOLATE MOFETIL [Suspect]
  7. MYCOPHENOLATE MOFETIL [Suspect]
  8. PREDNISONE [Suspect]
     Dosage: TAPERED WITHIN 4 WEEKS AFTER HOSPITALIZATION FOR ASPERGILLOSIS
  9. PREDNISONE [Suspect]
  10. CYCLOSPORINE [Concomitant]

REACTIONS (3)
  - ASPERGILLOSIS [None]
  - CARDIOGENIC SHOCK [None]
  - IMMUNOSUPPRESSION [None]
